FAERS Safety Report 16204392 (Version 2)
Quarter: 2019Q2

REPORT INFORMATION
  Report Type: Spontaneous
  Country: MX (occurrence: MX)
  Receive Date: 20190416
  Receipt Date: 20190603
  Transmission Date: 20190711
  Serious: Yes (Other)
  Sender: FDA-Public Use
  Company Number: PHHY2019MX085929

PATIENT
  Age: 46 Year
  Sex: Female

DRUGS (3)
  1. GILENYA [Suspect]
     Active Substance: FINGOLIMOD HYDROCHLORIDE
     Dosage: 1 DF, QD
     Route: 048
  2. VITAMIN D [Concomitant]
     Active Substance: VITAMIN D NOS
     Indication: VITAMIN D DEFICIENCY
     Dosage: 10000 IU, QD
     Route: 048
     Dates: start: 20120101
  3. GILENYA [Suspect]
     Active Substance: FINGOLIMOD HYDROCHLORIDE
     Indication: MULTIPLE SCLEROSIS
     Dosage: 1 DF, QD
     Route: 048
     Dates: start: 20120101, end: 2016

REACTIONS (6)
  - Lymphocyte count decreased [Unknown]
  - Herpes virus infection [Recovered/Resolved]
  - Intraductal papilloma of breast [Unknown]
  - Lobular breast carcinoma in situ [Unknown]
  - Immune reconstitution inflammatory syndrome [Recovered/Resolved]
  - Breast hyperplasia [Unknown]

NARRATIVE: CASE EVENT DATE: 20160701
